FAERS Safety Report 22869355 (Version 6)
Quarter: 2025Q2

REPORT INFORMATION
  Report Type: Report from Study
  Country: MX (occurrence: MX)
  Receive Date: 20230826
  Receipt Date: 20250609
  Transmission Date: 20250717
  Serious: Yes (Life-Threatening, Other)
  Sender: NOVARTIS
  Company Number: MX-002147023-NVSC2022MX302708

PATIENT
  Age: 47 Year
  Sex: Female
  Weight: 81 kg

DRUGS (5)
  1. COSENTYX [Suspect]
     Active Substance: SECUKINUMAB
     Indication: Ankylosing spondylitis
     Route: 065
  2. COSENTYX [Suspect]
     Active Substance: SECUKINUMAB
     Dosage: 300 MG, QMO
     Route: 065
  3. COSENTYX [Suspect]
     Active Substance: SECUKINUMAB
     Dosage: 300 MG, QMO (2 DF OF 150 MG)
     Route: 058
  4. COSENTYX [Suspect]
     Active Substance: SECUKINUMAB
     Dosage: 150 MG, QMO (1 PENS)
     Route: 058
     Dates: start: 202205, end: 202301
  5. COSENTYX [Suspect]
     Active Substance: SECUKINUMAB
     Dosage: 300 MG, QMO (2 PENS)
     Route: 058
     Dates: start: 202301

REACTIONS (28)
  - Nerve compression [Unknown]
  - Platelet count abnormal [Unknown]
  - Lymphocyte count abnormal [Unknown]
  - Osteoarthritis [Unknown]
  - Arteriosclerosis [Unknown]
  - Tuberculin test positive [Unknown]
  - Cardiomegaly [Unknown]
  - Mycobacterium tuberculosis complex test positive [Unknown]
  - HLA-B*27 positive [Unknown]
  - Spinal osteoarthritis [Unknown]
  - Haemoglobin decreased [Not Recovered/Not Resolved]
  - Inflammation [Unknown]
  - Pain [Not Recovered/Not Resolved]
  - Haematocrit decreased [Unknown]
  - Heavy menstrual bleeding [Unknown]
  - Intervertebral disc disorder [Unknown]
  - Dehydration [Unknown]
  - Intervertebral disc protrusion [Unknown]
  - Ligament disorder [Unknown]
  - Syndesmophyte [Unknown]
  - Sacroiliitis [Unknown]
  - Lipids increased [Unknown]
  - Blood chloride increased [Unknown]
  - Mean cell haemoglobin decreased [Unknown]
  - Mean cell haemoglobin concentration decreased [Unknown]
  - Circumstance or information capable of leading to medication error [Unknown]
  - Product use issue [Unknown]
  - Drug effect less than expected [Unknown]

NARRATIVE: CASE EVENT DATE: 20211117
